FAERS Safety Report 23144909 (Version 1)
Quarter: 2023Q4

REPORT INFORMATION
  Report Type: Spontaneous
  Country: CN (occurrence: CN)
  Receive Date: 20231103
  Receipt Date: 20231103
  Transmission Date: 20240109
  Serious: Yes (Hospitalization, Other)
  Sender: FDA-Public Use
  Company Number: CN-AMGEN-CHNSP2023193882

PATIENT
  Age: 22 Year
  Sex: Male
  Weight: 51 kg

DRUGS (5)
  1. KYPROLIS [Suspect]
     Active Substance: CARFILZOMIB
     Indication: Precursor T-lymphoblastic lymphoma/leukaemia refractory
     Dosage: 60 MILLIGRAM (ON DAY 1 AND DAY 8)
     Route: 042
     Dates: start: 20230913, end: 20230913
  2. EPIRUBICIN HYDROCHLORIDE [Suspect]
     Active Substance: EPIRUBICIN HYDROCHLORIDE
     Indication: Precursor T-lymphoblastic lymphoma/leukaemia refractory
     Dosage: 110 MILLIGRAM (DAY 1 AND DAY 8)
     Route: 042
     Dates: start: 20230913, end: 20230913
  3. VINCRISTINE SULFATE [Suspect]
     Active Substance: VINCRISTINE SULFATE
     Indication: Precursor T-lymphoblastic lymphoma/leukaemia refractory
     Dosage: 2 MILLIGRAM (DAY 1 AND DAY 8)
     Route: 042
     Dates: start: 20230913, end: 20230913
  4. DEXAMETHASONE [Suspect]
     Active Substance: DEXAMETHASONE
     Indication: Precursor T-lymphoblastic lymphoma/leukaemia refractory
     Dosage: 15 MILLIGRAM (DAY 1 TO DAY 5)
     Route: 065
     Dates: start: 20230913
  5. PEGASPARGASE [Suspect]
     Active Substance: PEGASPARGASE
     Indication: Precursor T-lymphoblastic lymphoma/leukaemia refractory
     Dosage: UNK (3750 ID ON DAY 3
     Route: 065
     Dates: start: 20230913

REACTIONS (1)
  - Myelosuppression [Recovering/Resolving]

NARRATIVE: CASE EVENT DATE: 20230929
